FAERS Safety Report 10656494 (Version 2)
Quarter: 2014Q4

REPORT INFORMATION
  Report Type: Report from Study
  Country: US (occurrence: US)
  Receive Date: 20141216
  Receipt Date: 20141219
  Transmission Date: 20150529
  Serious: Yes (Hospitalization, Other)
  Sender: FDA-Public Use
  Company Number: US-BAXTER-2014BAX072548

PATIENT
  Age: 8 Year
  Sex: Male

DRUGS (2)
  1. ADVATE [Suspect]
     Active Substance: ANTIHEMOPHILIC FACTOR, HUMAN RECOMBINANT
     Indication: PROPHYLAXIS
  2. ADVATE [Suspect]
     Active Substance: ANTIHEMOPHILIC FACTOR, HUMAN RECOMBINANT
     Indication: FACTOR VIII DEFICIENCY
     Route: 042
     Dates: start: 20040913

REACTIONS (12)
  - Pain [Recovering/Resolving]
  - Device related infection [Recovered/Resolved]
  - Asthenia [Recovering/Resolving]
  - Muscle haemorrhage [Recovering/Resolving]
  - Purulent discharge [Recovered/Resolved]
  - Wound [Not Recovered/Not Resolved]
  - Wound dehiscence [Recovered/Resolved]
  - Limb injury [Not Recovered/Not Resolved]
  - Head injury [Recovered/Resolved]
  - Contusion [Unknown]
  - Localised infection [Recovered/Resolved]
  - Blister [Recovered/Resolved]

NARRATIVE: CASE EVENT DATE: 201307
